FAERS Safety Report 20784614 (Version 3)
Quarter: 2022Q3

REPORT INFORMATION
  Report Type: Spontaneous
  Country: US (occurrence: US)
  Receive Date: 20220504
  Receipt Date: 20220822
  Transmission Date: 20221027
  Serious: Yes (Hospitalization, Other)
  Sender: FDA-Public Use
  Company Number: US-AMNEAL PHARMACEUTICALS-2022-AMRX-01156

PATIENT
  Sex: Male
  Weight: 15.42 kg

DRUGS (2)
  1. VIGABATRIN [Suspect]
     Active Substance: VIGABATRIN
     Indication: Epilepsy
     Dosage: POWDER-ORAL SUSPENSION 500 MILLIGRAM, 2 /DAY
     Route: 048
  2. POLY VI SOL [VITAMINS NOS] [Concomitant]
     Indication: Product used for unknown indication
     Route: 065

REACTIONS (3)
  - Seizure [Unknown]
  - Head banging [Unknown]
  - Product dose omission issue [Unknown]
